FAERS Safety Report 6065095-0 (Version None)
Quarter: 2009Q1

REPORT INFORMATION
  Report Type: 
  Country: None (occurrence: None)
  Receive Date: 20090130
  Receipt Date: 20090119
  Transmission Date: 20090719
  Serious: Yes (Hospitalization)
  Sender: FDA-Public Use
  Company Number: 230032K09CAN

PATIENT
  Age: 44 Year
  Sex: Female

DRUGS (1)
  1. REBIF [Suspect]
     Indication: MULTIPLE SCLEROSIS
     Dosage: 22 MCG, 3 IN 1 WEEK, SUBCUTANEOUS
     Route: 058
     Dates: start: 20081101

REACTIONS (8)
  - CULTURE THROAT POSITIVE [None]
  - DIZZINESS [None]
  - EAR DISORDER [None]
  - EAR INFECTION VIRAL [None]
  - EFFUSION [None]
  - FACIAL PAIN [None]
  - STREPTOCOCCAL INFECTION [None]
  - VOMITING [None]
